FAERS Safety Report 16097835 (Version 1)
Quarter: 2019Q1

REPORT INFORMATION
  Report Type: Report from Study
  Country: IT (occurrence: IT)
  Receive Date: 20190320
  Receipt Date: 20190320
  Transmission Date: 20190418
  Serious: Yes (Other)
  Sender: FDA-Public Use
  Company Number: IT-TEVA-2019-IT-1024818

PATIENT
  Age: 11 Year
  Sex: Female
  Weight: 60 kg

DRUGS (12)
  1. METHOTREXATE. [Suspect]
     Active Substance: METHOTREXATE
     Indication: ACUTE LYMPHOCYTIC LEUKAEMIA
     Route: 042
     Dates: start: 20180910, end: 20180924
  2. URBASON [Concomitant]
     Active Substance: METHYLPREDNISOLONE
     Dates: start: 20180910, end: 20180924
  3. CIPROXIN [Concomitant]
     Active Substance: CIPROFLOXACIN
     Dosage: 1000 MILLIGRAM DAILY;
  4. DECADRON [Concomitant]
     Active Substance: DEXAMETHASONE
     Dosage: 15.4 MILLIGRAM DAILY;
     Route: 048
  5. PAXABEL [Concomitant]
     Dosage: 10 GRAM DAILY;
     Route: 048
  6. ZOFRAN [Concomitant]
     Active Substance: ONDANSETRON HYDROCHLORIDE
     Dosage: 8 MILLIGRAM DAILY;
     Route: 042
  7. ANTRA [Concomitant]
     Active Substance: OMEPRAZOLE
     Dosage: 40 MILLIGRAM DAILY;
     Route: 042
  8. ANTITHROMBIN III HUMAN [Concomitant]
     Active Substance: ANTITHROMBIN III HUMAN
     Route: 042
  9. PEGASPARGASE [Suspect]
     Active Substance: PEGASPARGASE
     Indication: ACUTE LYMPHOCYTIC LEUKAEMIA
     Route: 042
     Dates: start: 20180920, end: 20181004
  10. VINCRISTINE [Suspect]
     Active Substance: VINCRISTINE
     Indication: ACUTE LYMPHOCYTIC LEUKAEMIA
     Dates: start: 20180917, end: 20181001
  11. MYCOSTATIN [Concomitant]
     Active Substance: NYSTATIN
     Dosage: 15 ML DAILY;
     Route: 048
  12. DAUNOBLASTINA [Suspect]
     Active Substance: DAUNORUBICIN
     Indication: ACUTE LYMPHOCYTIC LEUKAEMIA
     Route: 042
     Dates: start: 20180917, end: 20181001

REACTIONS (2)
  - Leukopenia [Recovered/Resolved]
  - Neutropenia [Recovered/Resolved]

NARRATIVE: CASE EVENT DATE: 20180927
